FAERS Safety Report 5176593-6 (Version None)
Quarter: 2006Q4

REPORT INFORMATION
  Report Type: 
  Country: None (occurrence: None)
  Receive Date: 20061215
  Receipt Date: 20061120
  Transmission Date: 20070319
  Serious: Yes (Hospitalization)
  Sender: FDA-Public Use
  Company Number: DE-ABBOTT-06P-062-0350931-00

PATIENT
  Sex: Female
  Weight: 90 kg

DRUGS (8)
  1. HUMIRA [Suspect]
     Indication: RHEUMATOID ARTHRITIS
     Route: 058
     Dates: start: 20050429, end: 20060630
  2. HUMIRA [Suspect]
     Route: 058
     Dates: start: 20060630, end: 20060701
  3. HUMIRA [Suspect]
     Route: 058
     Dates: start: 20060701, end: 20060701
  4. HUMIRA [Suspect]
     Route: 058
     Dates: start: 20060701, end: 20061114
  5. HUMIRA [Suspect]
     Route: 058
     Dates: start: 20061114
  6. METHOTREXATE SODIUM [Concomitant]
     Indication: RHEUMATOID ARTHRITIS
     Route: 042
     Dates: start: 20021201
  7. METHOTREXATE SODIUM [Concomitant]
     Route: 058
  8. PREDNISOLONE [Concomitant]
     Indication: RHEUMATOID ARTHRITIS
     Route: 048
     Dates: start: 20060701, end: 20061101

REACTIONS (1)
  - CERVIX CARCINOMA [None]
